FAERS Safety Report 5331433-7 (Version None)
Quarter: 2007Q2

REPORT INFORMATION
  Report Type: 
  Country: None (occurrence: None)
  Receive Date: 20070522
  Receipt Date: 20070509
  Transmission Date: 20071010
  Serious: Yes (Hospitalization)
  Sender: FDA-Public Use
  Company Number: FR-ASTRAZENECA-2007CG00720

PATIENT
  Age: 78 Year
  Sex: Female

DRUGS (5)
  1. TENORMIN [Suspect]
     Route: 048
     Dates: start: 20061115
  2. TRIATEC [Suspect]
     Dates: start: 20061115, end: 20070115
  3. KARDEGIC [Suspect]
     Route: 048
     Dates: start: 20061115
  4. TAHOR [Suspect]
     Route: 048
     Dates: start: 20061115
  5. PLAVIX [Suspect]
     Route: 048
     Dates: start: 20061115, end: 20070115

REACTIONS (2)
  - COUGH [None]
  - EOSINOPHILIC PNEUMONIA [None]
